FAERS Safety Report 18700209 (Version 1)
Quarter: 2021Q1

REPORT INFORMATION
  Report Type: Spontaneous
  Country: US (occurrence: US)
  Receive Date: 20210104
  Receipt Date: 20210104
  Transmission Date: 20210419
  Serious: Yes (Other)
  Sender: FDA-Public Use
  Company Number: None

PATIENT
  Age: 86 Year
  Sex: Female
  Weight: 65.77 kg

DRUGS (1)
  1. BAMLANIVIMAB. [Suspect]
     Active Substance: BAMLANIVIMAB
     Indication: COVID-19
     Dates: start: 20210102, end: 20210102

REACTIONS (4)
  - Abdominal pain [None]
  - Pain [None]
  - Pain in extremity [None]
  - Infusion related reaction [None]

NARRATIVE: CASE EVENT DATE: 20210102
